FAERS Safety Report 23273422 (Version 2)
Quarter: 2024Q1

REPORT INFORMATION
  Report Type: Spontaneous
  Country: FR (occurrence: FR)
  Receive Date: 20231207
  Receipt Date: 20240312
  Transmission Date: 20240409
  Serious: Yes (Other)
  Sender: FDA-Public Use
  Company Number: None

PATIENT
  Age: 9 Year
  Sex: Male

DRUGS (1)
  1. NOXAFIL [Suspect]
     Active Substance: POSACONAZOLE
     Indication: Prophylaxis
     Dosage: 200 MILLIGRAM, ONCE
     Route: 050
     Dates: start: 20231109, end: 20231109

REACTIONS (7)
  - Product prescribing error [Recovered/Resolved]
  - Product dispensing error [Recovered/Resolved]
  - Medication error [Unknown]
  - Wrong technique in product usage process [Unknown]
  - Product use issue [Unknown]
  - Complication associated with device [Unknown]
  - Underdose [Unknown]
